FAERS Safety Report 24445597 (Version 1)
Quarter: 2024Q4

REPORT INFORMATION
  Report Type: Spontaneous
  Country: US (occurrence: None)
  Receive Date: 20241016
  Receipt Date: 20241016
  Transmission Date: 20250115
  Serious: Yes (Disabling)
  Sender: Public
  Company Number: None

PATIENT
  Age: 62 Year
  Sex: Female
  Weight: 65.25 kg

DRUGS (1)
  1. AZITHROMYCIN [Suspect]
     Active Substance: AZITHROMYCIN
     Indication: Rash
     Dosage: OTHER QUANTITY : 2 TABLET(S);?OTHER FREQUENCY : TAKE 2 DAY 1;?
     Route: 048
     Dates: start: 2024, end: 20240916

REACTIONS (5)
  - Swollen tongue [None]
  - Diplopia [None]
  - Nausea [None]
  - Diarrhoea [None]
  - Anal incontinence [None]

NARRATIVE: CASE EVENT DATE: 20240816
